FAERS Safety Report 4444112-5 (Version None)
Quarter: 2004Q3

REPORT INFORMATION
  Report Type: 
  Country: None (occurrence: None)
  Receive Date: 20040729
  Receipt Date: 20030915
  Transmission Date: 20050211
  Serious: Yes (Death)
  Sender: FDA-Public Use
  Company Number: USA-2003-0009580

PATIENT
  Age: 40 Year
  Sex: Male

DRUGS (6)
  1. MORPHINE SULFATE [Suspect]
  2. METHADONE HCL [Suspect]
  3. DIAZEPAM [Suspect]
  4. CLONAZEPAM [Suspect]
  5. DIPHENHYDRAMINE HCL [Suspect]
  6. CAFFEINE (CAFFEINE) [Suspect]

REACTIONS (3)
  - ACCIDENTAL OVERDOSE [None]
  - DRUG ABUSER [None]
  - MULTIPLE DRUG OVERDOSE [None]
